FAERS Safety Report 18766661 (Version 1)
Quarter: 2021Q1

REPORT INFORMATION
  Report Type: Spontaneous
  Country: US (occurrence: US)
  Receive Date: 20210121
  Receipt Date: 20210121
  Transmission Date: 20210419
  Serious: No
  Sender: FDA-Public Use
  Company Number: US-LEADINGPHARMA-US-2021LEASPO00001

PATIENT
  Age: 90 Year
  Sex: Female

DRUGS (1)
  1. LORAZEPAM TABLETS USP [Suspect]
     Active Substance: LORAZEPAM
     Indication: DEPRESSION
     Route: 048

REACTIONS (7)
  - Feeling abnormal [Recovering/Resolving]
  - Withdrawal syndrome [Recovering/Resolving]
  - Abdominal discomfort [Recovering/Resolving]
  - Intentional dose omission [Unknown]
  - Dizziness [Recovering/Resolving]
  - Hot flush [Recovering/Resolving]
  - Nervousness [Recovering/Resolving]
